FAERS Safety Report 10733523 (Version 3)
Quarter: 2015Q2

REPORT INFORMATION
  Report Type: Spontaneous
  Country: US (occurrence: US)
  Receive Date: 20150123
  Receipt Date: 20150511
  Transmission Date: 20150821
  Serious: Yes (Hospitalization, Other)
  Sender: FDA-Public Use
  Company Number: US-BAYER-2015-009511

PATIENT
  Age: 20 Year
  Sex: Female
  Weight: 70.75 kg

DRUGS (2)
  1. FLAGYL [Concomitant]
     Active Substance: METRONIDAZOLE\METRONIDAZOLE HYDROCHLORIDE
  2. MIRENA [Suspect]
     Active Substance: LEVONORGESTREL
     Indication: CONTRACEPTION
     Dosage: 20 MCG/24HR, CONT
     Route: 015
     Dates: start: 20120312, end: 20130307

REACTIONS (9)
  - Emotional distress [None]
  - Pelvic inflammatory disease [None]
  - Pain [None]
  - Injury [None]
  - Device dislocation [None]
  - Embedded device [None]
  - Anxiety [None]
  - Device difficult to use [None]
  - Complication of device removal [None]

NARRATIVE: CASE EVENT DATE: 2013
